FAERS Safety Report 17573667 (Version 1)
Quarter: 2020Q1

REPORT INFORMATION
  Report Type: Report from Study
  Country: AR (occurrence: AR)
  Receive Date: 20200323
  Receipt Date: 20200323
  Transmission Date: 20200409
  Serious: Yes (Hospitalization)
  Sender: FDA-Public Use
  Company Number: NVSC2020AR063475

PATIENT
  Age: 70 Year
  Sex: Male

DRUGS (2)
  1. VEDIPAL [Concomitant]
     Indication: VARICOSE VEIN
     Dosage: 1 UNK, QD
     Route: 065
  2. COSENTYX [Suspect]
     Active Substance: SECUKINUMAB
     Indication: PSORIASIS
     Dosage: 300 MG, QMO
     Route: 065
     Dates: start: 20180503, end: 20200120

REACTIONS (3)
  - Procedural pain [Unknown]
  - Malaise [Unknown]
  - Gallbladder disorder [Unknown]

NARRATIVE: CASE EVENT DATE: 202001
